FAERS Safety Report 10276169 (Version 1)
Quarter: 2014Q3

REPORT INFORMATION
  Report Type: Spontaneous
  Country: IT (occurrence: IT)
  Receive Date: 20140703
  Receipt Date: 20140703
  Transmission Date: 20150326
  Serious: Yes (Hospitalization, Other)
  Sender: FDA-Public Use
  Company Number: IT-CELGENEUS-083-50794-14064011

PATIENT
  Age: 81 Year
  Sex: Male

DRUGS (1)
  1. VIDAZA [Suspect]
     Active Substance: AZACITIDINE
     Indication: ACUTE MYELOID LEUKAEMIA
     Route: 065
     Dates: start: 20120124, end: 20140321

REACTIONS (9)
  - Epistaxis [Unknown]
  - Fall [Unknown]
  - Parotitis [Unknown]
  - Thrombophlebitis [Unknown]
  - Rhinitis [Unknown]
  - Thrombocytopenia [Unknown]
  - Cellulitis [Unknown]
  - Blood product transfusion dependent [Unknown]
  - Leukopenia [Unknown]

NARRATIVE: CASE EVENT DATE: 201307
